FAERS Safety Report 8429503-X (Version None)
Quarter: 2012Q2

REPORT INFORMATION
  Report Type: 
  Country: None (occurrence: None)
  Receive Date: 20120604
  Receipt Date: 20120525
  Transmission Date: 20120825
  Serious: Yes (Other)
  Sender: FDA-Public Use
  Company Number: AUR-APL-2012-02307

PATIENT
  Age: 25 Year
  Sex: Female

DRUGS (4)
  1. BRIMONIDINE/TIMOLOL [Concomitant]
  2. ACETAZOLAMIDE [Concomitant]
  3. TOPIRAMATE [Suspect]
     Indication: HEADACHE
     Dosage: (100 MG, 1 D),
  4. TOPIRAMATE [Suspect]
     Indication: INSOMNIA
     Dosage: (100 MG, 1 D),

REACTIONS (3)
  - MACULOPATHY [None]
  - TOXICITY TO VARIOUS AGENTS [None]
  - ANGLE CLOSURE GLAUCOMA [None]
